FAERS Safety Report 5466667-4 (Version None)
Quarter: 2007Q3

REPORT INFORMATION
  Report Type: 
  Country: None (occurrence: None)
  Receive Date: 20070921
  Receipt Date: 20070921
  Transmission Date: 20080115
  Serious: Yes (Hospitalization)
  Sender: FDA-Public Use
  Company Number: None

PATIENT
  Sex: Female
  Weight: 52.2 kg

DRUGS (2)
  1. CISPLATIN [Suspect]
     Indication: EPIGLOTTIC CARCINOMA
     Dosage: 100MG/MD IV Q4WKS
     Route: 042
     Dates: start: 20070730
  2. CETUXIMAB [Suspect]
     Indication: EPIGLOTTIC CARCINOMA
     Dosage: 250MG/M2 IV QW
     Route: 042
     Dates: start: 20070911

REACTIONS (2)
  - CONSTIPATION [None]
  - HAEMORRHOIDAL HAEMORRHAGE [None]
